FAERS Safety Report 18269682 (Version 2)
Quarter: 2020Q3

REPORT INFORMATION
  Report Type: Spontaneous
  Country: PT (occurrence: PT)
  Receive Date: 20200916
  Receipt Date: 20200929
  Transmission Date: 20201103
  Serious: Yes (Other)
  Sender: FDA-Public Use
  Company Number: PT-AUROBINDO-AUR-APL-2020-047507

PATIENT
  Age: 42 Year
  Sex: Female
  Weight: 79 kg

DRUGS (7)
  1. BEVACIZUMAB. [Suspect]
     Active Substance: BEVACIZUMAB
     Indication: METASTASES TO LIVER
     Dosage: UNK (FOLFIRI + BEVACIZUMAB ;ONGOING: UNKNOWN)
     Route: 065
     Dates: start: 20200101
  2. BEVACIZUMAB. [Suspect]
     Active Substance: BEVACIZUMAB
     Dosage: UNK
     Route: 065
     Dates: start: 20200717
  3. CAPECITABINE FILM COATED TABLET [Suspect]
     Active Substance: CAPECITABINE
     Indication: INTESTINAL ADENOCARCINOMA
     Dosage: UNK (NO)
     Route: 065
     Dates: start: 20200101, end: 20200618
  4. OXALIPLATIN. [Concomitant]
     Active Substance: OXALIPLATIN
     Indication: INTESTINAL ADENOCARCINOMA
     Dosage: UNK (CAPOX (X1) ?} FOLFOX (X10) FROM JANUARY TO JUNE/20 ;ONGOING: NO)
     Route: 065
     Dates: start: 202001, end: 20200618
  5. FLUOROURACIL;FOLINIC ACID;IRINOTECAN [Concomitant]
     Dosage: UNK
     Route: 065
     Dates: start: 20200717
  6. CAPECITABINE FILM COATED TABLET [Suspect]
     Active Substance: CAPECITABINE
     Indication: METASTASES TO LIVER
  7. FLUOROURACIL;FOLINIC ACID;IRINOTECAN [Concomitant]
     Indication: METASTASES TO LIVER
     Dosage: UNK (FOLFIRI + BEVACIZUMAB ;ONGOING: UNKNOWN)
     Route: 065

REACTIONS (16)
  - Tumour obstruction [Unknown]
  - Carcinoembryonic antigen increased [Unknown]
  - Nausea [Not Recovered/Not Resolved]
  - Flank pain [Unknown]
  - Neoplasm recurrence [Not Recovered/Not Resolved]
  - Abdominal distension [Not Recovered/Not Resolved]
  - Vomiting [Not Recovered/Not Resolved]
  - Drug resistance [Unknown]
  - Musculoskeletal chest pain [Unknown]
  - Metastases to muscle [Unknown]
  - Asthenia [Unknown]
  - Proctalgia [Unknown]
  - Malignant gastrointestinal obstruction [Not Recovered/Not Resolved]
  - Metastases to liver [Unknown]
  - Pain [Unknown]
  - Metastases to peritoneum [Not Recovered/Not Resolved]

NARRATIVE: CASE EVENT DATE: 202006
